FAERS Safety Report 15430640 (Version 1)
Quarter: 2018Q4

REPORT INFORMATION
  Report Type: Spontaneous
  Country: US (occurrence: US)
  Receive Date: 20180926
  Receipt Date: 20180926
  Transmission Date: 20190204
  Serious: No
  Sender: FDA-Public Use
  Company Number: US-ASSERTIO THERAPEUTICS, INC.-US-2018DEP000397

PATIENT

DRUGS (4)
  1. GRALISE [Suspect]
     Active Substance: GABAPENTIN
     Indication: NERVE INJURY
     Dosage: 1800 MG, QD
     Route: 048
     Dates: start: 201706
  2. TOPAMAX [Concomitant]
     Active Substance: TOPIRAMATE
     Indication: MIGRAINE
     Dosage: 400 MG, QD
     Route: 048
     Dates: start: 2000
  3. COREG [Concomitant]
     Active Substance: CARVEDILOL
     Indication: MIGRAINE
     Dosage: UNK, BID
     Route: 048
     Dates: start: 2000
  4. LIPITOR [Concomitant]
     Active Substance: ATORVASTATIN CALCIUM
     Indication: BLOOD CHOLESTEROL ABNORMAL
     Dosage: 20 MG, QD
     Route: 048
     Dates: start: 1998

REACTIONS (2)
  - Product use in unapproved indication [Unknown]
  - Abnormal faeces [Not Recovered/Not Resolved]

NARRATIVE: CASE EVENT DATE: 201706
